FAERS Safety Report 7347288-5 (Version None)
Quarter: 2011Q1

REPORT INFORMATION
  Report Type: 
  Country: None (occurrence: None)
  Receive Date: 20110311
  Receipt Date: 20110225
  Transmission Date: 20110831
  Serious: Yes (Death, Hospitalization, Other)
  Sender: FDA-Public Use
  Company Number: PHHY2011BR16623

PATIENT
  Age: 70 Year
  Sex: Female
  Weight: 54 kg

DRUGS (18)
  1. CHLORTHALIDONE [Suspect]
     Dosage: 50 MG, UNK
  2. ENALAPRIL MALEATE [Concomitant]
     Dosage: 20 MG, UNK
  3. SPIRONOLACTONE [Concomitant]
     Dosage: 25 MG, UNK
  4. VERAPAMIL [Concomitant]
     Dosage: 240 MG, UNK
  5. AMLODIPINE [Concomitant]
  6. CEFTRIAXONE [Concomitant]
     Dosage: 2 G, UNK
  7. HYDRALAZINE [Suspect]
  8. QUINIDINE HCL [Concomitant]
     Dosage: 600 MG, UNK
  9. CAPTOPRIL [Concomitant]
     Dosage: 75 MG, UNK
  10. DIGOXIN [Concomitant]
     Dosage: 0.25 MG, UNK
  11. METHYLDOPA [Concomitant]
  12. GLIBENCLAMIDE [Concomitant]
     Dosage: 10 MG, UNK
  13. BEZAFIBRATE [Concomitant]
     Dosage: 400 MG, UNK
  14. CLONIDINE [Concomitant]
  15. GLIBENCLAMIDE [Concomitant]
     Dosage: 5 MG, UNK
  16. SIMVASTATIN [Concomitant]
     Dosage: 20 MG, UNK
  17. HYDROCHLOROTHIAZIDE [Suspect]
     Dosage: 25 MG, UNK
  18. CLARITHROMYCIN [Concomitant]
     Dosage: 1 G, UNK

REACTIONS (24)
  - RESPIRATORY RATE INCREASED [None]
  - OEDEMA PERIPHERAL [None]
  - SUPRAVENTRICULAR EXTRASYSTOLES [None]
  - DYSPNOEA [None]
  - RESPIRATORY FAILURE [None]
  - BRONCHOSPASM [None]
  - ELECTROCARDIOGRAM ST SEGMENT DEPRESSION [None]
  - DIABETES MELLITUS INADEQUATE CONTROL [None]
  - BLOOD POTASSIUM DECREASED [None]
  - HAEMODYNAMIC INSTABILITY [None]
  - TRICUSPID VALVE INCOMPETENCE [None]
  - LUNG INFILTRATION [None]
  - CREPITATIONS [None]
  - PNEUMONIA [None]
  - DECREASED APPETITE [None]
  - HYPOTENSION [None]
  - CARDIAC ARREST [None]
  - FATIGUE [None]
  - COUGH [None]
  - ATRIAL TACHYCARDIA [None]
  - PULSELESS ELECTRICAL ACTIVITY [None]
  - LEFT VENTRICULAR HYPERTROPHY [None]
  - BLOOD PRESSURE INCREASED [None]
  - RADIAL PULSE DECREASED [None]
